FAERS Safety Report 15916429 (Version 1)
Quarter: 2019Q1

REPORT INFORMATION
  Report Type: Report from Study
  Country: None (occurrence: US)
  Receive Date: 20190204
  Receipt Date: 20190204
  Transmission Date: 20190417
  Serious: Yes (Hospitalization, Other)
  Sender: FDA-Public Use
  Company Number: US-ABBVIE-19S-163-2649612-00

PATIENT
  Age: 61 Year
  Sex: Male
  Weight: 84.44 kg

DRUGS (5)
  1. LOSARTIN [Concomitant]
     Active Substance: LOSARTAN
     Indication: HYPERTENSION
  2. BABY ASPIRIN [Concomitant]
     Active Substance: ASPIRIN
     Indication: CARDIOVASCULAR EVENT PROPHYLAXIS
  3. LORATADINE. [Concomitant]
     Active Substance: LORATADINE
     Indication: HYPERSENSITIVITY
  4. OMEPRAZOLE. [Concomitant]
     Active Substance: OMEPRAZOLE
     Indication: GASTRIC PH DECREASED
  5. KALETRA [Suspect]
     Active Substance: LOPINAVIR\RITONAVIR
     Indication: HIV TEST POSITIVE
     Route: 048
     Dates: start: 2005

REACTIONS (7)
  - Fall [Recovered/Resolved]
  - Nerve compression [Unknown]
  - Sciatic nerve injury [Recovered/Resolved]
  - Hand fracture [Recovered/Resolved]
  - Post procedural oedema [Recovered/Resolved]
  - Motor dysfunction [Not Recovered/Not Resolved]
  - Back pain [Not Recovered/Not Resolved]

NARRATIVE: CASE EVENT DATE: 201704
